FAERS Safety Report 15125995 (Version 1)
Quarter: 2018Q3

REPORT INFORMATION
  Report Type: Spontaneous
  Country: US (occurrence: US)
  Receive Date: 20180710
  Receipt Date: 20180710
  Transmission Date: 20181010
  Serious: Yes (Other)
  Sender: FDA-Public Use
  Company Number: US-ASTRAZENECA-2018SE85954

PATIENT
  Age: 77 Year
  Sex: Female
  Weight: 78.9 kg

DRUGS (6)
  1. ADVAIR HFA [Concomitant]
     Active Substance: FLUTICASONE PROPIONATE\SALMETEROL XINAFOATE
     Dosage: 50, 500 MCG,TWO TIMES A DAY
     Route: 055
     Dates: start: 2014
  2. TUDORZA PRESSAIR [Suspect]
     Active Substance: ACLIDINIUM BROMIDE
     Indication: BRONCHITIS CHRONIC
     Route: 055
     Dates: start: 2016
  3. ALPHA?1?ANTITRYPSIN [Concomitant]
     Active Substance: .ALPHA.1-PROTEINASE INHIBITOR HUMAN
     Dosage: MG?AL?P?I?VIAL 50 ML PER BOTTLE TIMES 5 BOTTLES AND 1000 UNKNOWN SIGNIFICANCE
     Route: 042
     Dates: start: 2014
  4. TUDORZA PRESSAIR [Suspect]
     Active Substance: ACLIDINIUM BROMIDE
     Indication: BRONCHOSPASM
     Route: 055
     Dates: start: 2016
  5. TUDORZA PRESSAIR [Suspect]
     Active Substance: ACLIDINIUM BROMIDE
     Indication: ALPHA-1 ANTI-TRYPSIN DEFICIENCY
     Route: 055
     Dates: start: 2016
  6. TUDORZA PRESSAIR [Suspect]
     Active Substance: ACLIDINIUM BROMIDE
     Indication: CHRONIC OBSTRUCTIVE PULMONARY DISEASE
     Route: 055
     Dates: start: 2016

REACTIONS (9)
  - Drug dose omission [Unknown]
  - Device malfunction [Unknown]
  - Spinal column stenosis [Unknown]
  - Intentional device misuse [Unknown]
  - Dysgraphia [Unknown]
  - Memory impairment [Unknown]
  - Amnesia [Unknown]
  - Movement disorder [Unknown]
  - Cerebrovascular accident [Unknown]

NARRATIVE: CASE EVENT DATE: 2016
